FAERS Safety Report 8108841-4 (Version None)
Quarter: 2012Q1

REPORT INFORMATION
  Report Type: 
  Country: None (occurrence: None)
  Receive Date: 20120202
  Receipt Date: 20120117
  Transmission Date: 20120608
  Serious: No
  Sender: FDA-Public Use
  Company Number: US-AMGEN-USASP2011065779

PATIENT
  Age: 51 Year
  Sex: Female
  Weight: 94 kg

DRUGS (4)
  1. ENBREL [Suspect]
     Indication: RHEUMATOID ARTHRITIS
     Dosage: 50 MG, QWK
     Dates: start: 20110112
  2. ENBREL [Suspect]
     Indication: SJOGREN'S SYNDROME
  3. ENBREL [Suspect]
     Indication: FIBROMYALGIA
  4. ENBREL [Suspect]
     Indication: SYSTEMIC LUPUS ERYTHEMATOSUS

REACTIONS (5)
  - THERAPEUTIC RESPONSE DECREASED [None]
  - BREAKTHROUGH PAIN [None]
  - PAIN [None]
  - ARTHRALGIA [None]
  - INJECTION SITE HAEMORRHAGE [None]
